FAERS Safety Report 9057112 (Version 1)
Quarter: 2013Q1

REPORT INFORMATION
  Report Type: Report from Study
  Country: US (occurrence: US)
  Receive Date: 20130131
  Receipt Date: 20130131
  Transmission Date: 20140127
  Serious: No
  Sender: FDA-Public Use
  Company Number: US-ABBOTT-12P-163-0995295-00

PATIENT
  Age: 65 Year
  Sex: Female

DRUGS (8)
  1. HUMIRA [Suspect]
     Indication: PSORIATIC ARTHROPATHY
     Route: 058
     Dates: start: 20120701
  2. LEVOTHYROXINE [Concomitant]
     Indication: HYPOTHYROIDISM
     Dosage: DAILY
  3. CRESTOR [Concomitant]
     Indication: BLOOD CHOLESTEROL INCREASED
     Dosage: 3 DAYS A WEEK
  4. TRILIPIX [Concomitant]
     Indication: BLOOD TRIGLYCERIDES INCREASED
     Dosage: 1 PILL DAILY
  5. DILTIAZEM [Concomitant]
     Indication: HYPERTENSION
     Dosage: 1 PILL DAILY
  6. QUINAPRIL [Concomitant]
     Indication: HYPERTENSION
     Dosage: 1 PILL DAILY
  7. OMEPRAZOLE [Concomitant]
     Indication: HYPERTENSION
     Dosage: 1 PILL DAILY
  8. NEURONTIN [Concomitant]
     Indication: ARTHRITIS

REACTIONS (4)
  - Nasopharyngitis [Not Recovered/Not Resolved]
  - Nasal congestion [Not Recovered/Not Resolved]
  - Cough [Not Recovered/Not Resolved]
  - Sputum discoloured [Not Recovered/Not Resolved]
